FAERS Safety Report 10514320 (Version 1)
Quarter: 2014Q4

REPORT INFORMATION
  Report Type: Spontaneous
  Country: FR (occurrence: FR)
  Receive Date: 20141013
  Receipt Date: 20141013
  Transmission Date: 20150528
  Serious: Yes (Other)
  Sender: FDA-Public Use
  Company Number: FR-BRISTOL-MYERS SQUIBB COMPANY-21458864

PATIENT
  Sex: Female

DRUGS (1)
  1. KENACORT [Suspect]
     Active Substance: TRIAMCINOLONE

REACTIONS (2)
  - Adrenal insufficiency [Recovered/Resolved]
  - Overdose [Unknown]
